FAERS Safety Report 12827750 (Version 1)
Quarter: 2016Q4

REPORT INFORMATION
  Report Type: Spontaneous
  Country: US (occurrence: US)
  Receive Date: 20161006
  Receipt Date: 20161006
  Transmission Date: 20170207
  Serious: No
  Sender: FDA-Public Use
  Company Number: US-ASTRAZENECA-2016SF03293

PATIENT
  Age: 53 Year

DRUGS (5)
  1. SYMBICORT [Suspect]
     Active Substance: BUDESONIDE\FORMOTEROL FUMARATE DIHYDRATE
     Route: 055
  2. NEBULIZER MACHINE [Concomitant]
     Dosage: ABOUT 7 TIMES A DAY
  3. SPIRIVA [Concomitant]
     Active Substance: TIOTROPIUM BROMIDE MONOHYDRATE
  4. RESCUE INHALER [Concomitant]
  5. OXYGEN. [Concomitant]
     Active Substance: OXYGEN
     Dosage: ONCE IN A WHILE AT NIGHT I AM SUPPOSED TO USE IT EVERY NIGHT BUT I AM ONLY ON IT AT NIGHT

REACTIONS (1)
  - Dyspnoea [Unknown]
